FAERS Safety Report 6298034-8 (Version None)
Quarter: 2009Q3

REPORT INFORMATION
  Report Type: 
  Country: None (occurrence: None)
  Receive Date: 20090805
  Receipt Date: 20090729
  Transmission Date: 20100115
  Serious: Yes (Other)
  Sender: FDA-Public Use
  Company Number: US-ELI_LILLY_AND_COMPANY-US200907006721

PATIENT
  Sex: Female

DRUGS (17)
  1. HUMALOG [Suspect]
     Indication: TYPE 1 DIABETES MELLITUS
     Dosage: 6 U, UNKNOWN
     Dates: start: 20090729
  2. HUMALOG [Suspect]
     Dosage: 4 U, EACH MORNING
     Dates: start: 19990101
  3. HUMALOG [Suspect]
     Dosage: 7 U, EACH EVENING
     Dates: start: 19990101
  4. HUMALOG [Suspect]
     Dosage: 4 U, OTHER
     Dates: start: 19990101
  5. CLONIDINE [Concomitant]
  6. OMEPRAZOLE [Concomitant]
  7. LISINOPRIL [Concomitant]
  8. BUMETANIDE [Concomitant]
  9. SIMVASTATIN [Concomitant]
  10. ZANTAC [Concomitant]
  11. FORTICAL                           /00371903/ [Concomitant]
     Indication: OSTEOPOROSIS
  12. ASCORBIC ACID [Concomitant]
  13. VITAMIN D [Concomitant]
  14. VITAMIN B COMPLEX CAP [Concomitant]
  15. LOVAZA [Concomitant]
  16. IRON [Concomitant]
     Indication: ANAEMIA
  17. LEVEMIR [Concomitant]

REACTIONS (15)
  - ABDOMINAL DISCOMFORT [None]
  - ABDOMINAL PAIN UPPER [None]
  - ANAEMIA [None]
  - BACTERIAL INFECTION [None]
  - BLOOD GLUCOSE INCREASED [None]
  - DRUG INEFFECTIVE [None]
  - GASTRITIS [None]
  - GASTROOESOPHAGEAL REFLUX DISEASE [None]
  - GLYCOSYLATED HAEMOGLOBIN INCREASED [None]
  - HYPERTENSION [None]
  - INCORRECT DOSE ADMINISTERED [None]
  - INTENTIONAL DRUG MISUSE [None]
  - OSTEOPOROSIS [None]
  - RENAL ARTERY ARTERIOSCLEROSIS [None]
  - RENAL ARTERY OCCLUSION [None]
